FAERS Safety Report 8621526-0 (Version None)
Quarter: 2012Q3

REPORT INFORMATION
  Report Type: 
  Country: None (occurrence: None)
  Receive Date: 20120824
  Receipt Date: 20120806
  Transmission Date: 20120928
  Serious: No
  Sender: FDA-Public Use
  Company Number: US-009507513-1208USA007662

PATIENT

DRUGS (7)
  1. ALLOPURINOL [Concomitant]
     Dosage: UNK UNK, BID
  2. ATENOLOL [Concomitant]
     Dosage: 12.5 MG, QD
  3. IMMUNE GLOBULIN (HUMAN) [Concomitant]
     Dosage: UNK
  4. PEPCID [Suspect]
     Indication: GASTROOESOPHAGEAL REFLUX DISEASE
     Dosage: 20 MG, BID
     Route: 048
     Dates: start: 20060101
  5. XANTHINE [Concomitant]
     Dosage: UNK
  6. FORADIL [Concomitant]
     Dosage: UNK
  7. RYTHMOL [Concomitant]
     Dosage: UNK

REACTIONS (2)
  - FOREIGN BODY [None]
  - COELIAC DISEASE [None]
